FAERS Safety Report 17572299 (Version 1)
Quarter: 2020Q1

REPORT INFORMATION
  Report Type: Report from Study
  Country: US (occurrence: US)
  Receive Date: 20200323
  Receipt Date: 20200323
  Transmission Date: 20200409
  Serious: Yes (Death, Other)
  Sender: FDA-Public Use
  Company Number: NVSC2020US073188

PATIENT
  Age: 24 Year
  Sex: Male

DRUGS (4)
  1. CYCLOPHOSPHAMIDE. [Concomitant]
     Active Substance: CYCLOPHOSPHAMIDE
     Indication: CHEMOTHERAPY
     Route: 065
  2. FLUDARABINE [Concomitant]
     Active Substance: FLUDARABINE PHOSPHATE
     Indication: CHEMOTHERAPY
     Route: 065
  3. KYMRIAH [Suspect]
     Active Substance: TISAGENLECLEUCEL
     Indication: B-CELL TYPE ACUTE LEUKAEMIA
     Dosage: UNK, ONCE/SINGLE
     Route: 041
     Dates: start: 2018
  4. TOCILIZUMAB. [Concomitant]
     Active Substance: TOCILIZUMAB
     Indication: CYTOKINE RELEASE SYNDROME
     Route: 065

REACTIONS (33)
  - B-cell type acute leukaemia [Fatal]
  - Cytokine release syndrome [Recovered/Resolved]
  - Pyrexia [Unknown]
  - Hemiparesis [Unknown]
  - Pulmonary toxicity [Unknown]
  - Infection protozoal [Fatal]
  - Neurotoxicity [Recovered/Resolved]
  - Paraparesis [Unknown]
  - Hallucination [Unknown]
  - Rhabdomyolysis [Unknown]
  - Disseminated intravascular coagulation [Unknown]
  - Neurotoxicity [Unknown]
  - Tremor [Unknown]
  - White blood cell count decreased [Unknown]
  - Malignant neoplasm progression [Fatal]
  - Cytopenia [Unknown]
  - Cytomegalovirus infection [Unknown]
  - Hepatotoxicity [Unknown]
  - Human herpesvirus 6 infection [Unknown]
  - Treatment failure [Unknown]
  - Multiple organ dysfunction syndrome [Fatal]
  - Hypotension [Unknown]
  - Leukoencephalopathy [Unknown]
  - Aspergillus infection [Unknown]
  - Platelet count decreased [Unknown]
  - Seizure [Unknown]
  - Pseudomonas infection [Unknown]
  - Motor dysfunction [Unknown]
  - Depressed level of consciousness [Unknown]
  - Toxoplasmosis [Unknown]
  - Haemoglobin decreased [Unknown]
  - Haematocrit decreased [Unknown]
  - Gastrointestinal toxicity [Unknown]
